FAERS Safety Report 10060283 (Version 3)
Quarter: 2014Q2

REPORT INFORMATION
  Report Type: Spontaneous
  Country: US (occurrence: US)
  Receive Date: 20140404
  Receipt Date: 20140508
  Transmission Date: 20141212
  Serious: Yes (Death)
  Sender: FDA-Public Use
  Company Number: US-JNJFOC-20140402949

PATIENT
  Sex: 0

DRUGS (5)
  1. OLYSIO [Suspect]
     Indication: LIVER TRANSPLANT
     Route: 048
  2. OLYSIO [Suspect]
     Indication: HEPATITIS C
     Route: 048
  3. SOVALDI [Suspect]
     Indication: LIVER TRANSPLANT
     Route: 048
  4. SOVALDI [Suspect]
     Indication: HEPATITIS C
     Route: 048
  5. RIBAVIRIN [Suspect]
     Indication: HEPATITIS C
     Route: 065

REACTIONS (5)
  - Hepatitis C [Fatal]
  - Liver transplant rejection [Fatal]
  - Drug ineffective [Unknown]
  - Liver transplant [Unknown]
  - Off label use [Unknown]
